FAERS Safety Report 6009115-8 (Version None)
Quarter: 2008Q4

REPORT INFORMATION
  Report Type: 
  Country: None (occurrence: None)
  Receive Date: 20081216
  Receipt Date: 20081001
  Transmission Date: 20090506
  Serious: Yes (Other)
  Sender: FDA-Public Use
  Company Number: 2008S1000448

PATIENT
  Age: 86 Year
  Sex: Male

DRUGS (3)
  1. CUBICIN [Suspect]
     Indication: ENDOCARDITIS STAPHYLOCOCCAL
     Dosage: 300 MG; Q24H
  2. VANCOMYCIN [Concomitant]
  3. RIFAMPICIN [Concomitant]

REACTIONS (4)
  - LUNG ABSCESS [None]
  - PNEUMONIA [None]
  - PULMONARY ARTERY THROMBOSIS [None]
  - SEPTIC SHOCK [None]
